FAERS Safety Report 18658156 (Version 1)
Quarter: 2020Q4

REPORT INFORMATION
  Report Type: Spontaneous
  Country: JP (occurrence: JP)
  Receive Date: 20201224
  Receipt Date: 20201224
  Transmission Date: 20210114
  Serious: Yes (Other)
  Sender: FDA-Public Use
  Company Number: JP-MICRO LABS LIMITED-ML2020-03810

PATIENT
  Age: 5 Year
  Sex: Male

DRUGS (3)
  1. CLINDAMYCIN. [Suspect]
     Active Substance: CLINDAMYCIN
     Indication: EYE INFECTION TOXOPLASMAL
     Dosage: 20 MG/KG/DAY
  2. SULFADIAZINE. [Suspect]
     Active Substance: SULFADIAZINE
     Indication: EYE INFECTION TOXOPLASMAL
     Dosage: 100 MG/KG/DAY
  3. PYRIMETHAMINE [Concomitant]
     Active Substance: PYRIMETHAMINE
     Indication: EYE INFECTION TOXOPLASMAL
     Dosage: 1 MG/KG/DAY WITH LOADING DOSE OF 2 MG/KG/DAY DURING THE FIRST TWO DAYS

REACTIONS (1)
  - Liver injury [Recovering/Resolving]
